FAERS Safety Report 9062186 (Version 1)
Quarter: 2013Q1

REPORT INFORMATION
  Report Type: Spontaneous
  Country: US (occurrence: None)
  Receive Date: 20130122
  Receipt Date: 20130122
  Transmission Date: 20140127
  Serious: Yes (Disabling, Other)
  Sender: FDA-Public Use
  Company Number: 1562148

PATIENT
  Age: 8 Month
  Sex: Female

DRUGS (2)
  1. CARBOPLATIN [Suspect]
     Indication: CONGENITAL RETINOBLASTOMA
     Dosage: NOT REPORTED, UNKNOWN, UNKNOWN
  2. TOPOTECAN HYDROCHLORIDE [Suspect]
     Indication: CONGENITAL RETINOBLASTOMA
     Dosage: NOT REPORTED, UNKNOWN, UNKNOWN

REACTIONS (5)
  - Retinal haemorrhage [None]
  - Conjunctival haemorrhage [None]
  - Purpura [None]
  - Retinal oedema [None]
  - Macular vasospasm [None]
